FAERS Safety Report 9095931 (Version 2)
Quarter: 2013Q1

REPORT INFORMATION
  Report Type: Spontaneous
  Country: CA (occurrence: CA)
  Receive Date: 20130220
  Receipt Date: 20130301
  Transmission Date: 20140127
  Serious: Yes (Death, Hospitalization, Other)
  Sender: FDA-Public Use
  Company Number: CA-PFIZER INC-2008046603

PATIENT
  Age: 20 Year
  Sex: Female

DRUGS (1)
  1. MORPHINE SULFATE [Suspect]
     Indication: PRODUCT USED FOR UNKNOWN INDICATION
     Dosage: 12 TABLET, UNK
     Route: 048
     Dates: start: 20071028, end: 20071028

REACTIONS (3)
  - Overdose [Fatal]
  - Respiratory arrest [Fatal]
  - Malaise [Unknown]
